FAERS Safety Report 26019935 (Version 1)
Quarter: 2025Q4

REPORT INFORMATION
  Report Type: Spontaneous
  Country: US (occurrence: None)
  Receive Date: 20251108
  Receipt Date: 20251108
  Transmission Date: 20260117
  Serious: Yes (Life-Threatening)
  Sender: FDA-CTU
  Company Number: None

PATIENT
  Age: 55 Year
  Sex: Female
  Weight: 62.1 kg

DRUGS (1)
  1. JOURNAVX [Suspect]
     Active Substance: SUZETRIGINE
     Indication: Procedural pain
     Dates: start: 20251103, end: 20251104

REACTIONS (6)
  - Nausea [None]
  - Vomiting [None]
  - Burning sensation [None]
  - Erythema [None]
  - Erythema [None]
  - Rash macular [None]

NARRATIVE: CASE EVENT DATE: 20251104
